APPROVED DRUG PRODUCT: EXTENDED PHENYTOIN SODIUM
Active Ingredient: PHENYTOIN SODIUM
Strength: 100MG EXTENDED
Dosage Form/Route: CAPSULE;ORAL
Application: A211633 | Product #001
Applicant: LUPIN LTD
Approved: Sep 30, 2019 | RLD: No | RS: No | Type: DISCN